FAERS Safety Report 6326054-3 (Version None)
Quarter: 2009Q3

REPORT INFORMATION
  Report Type: 
  Country: None (occurrence: None)
  Receive Date: 20090824
  Receipt Date: 20090813
  Transmission Date: 20100115
  Serious: Yes (Other)
  Sender: FDA-Public Use
  Company Number: GB-TEVA-206379ISR

PATIENT
  Sex: Female

DRUGS (7)
  1. TRIMETHOPRIM [Suspect]
     Indication: URINARY TRACT INFECTION
  2. PHENYTOIN SODIUM [Interacting]
  3. LEVOTHYROXINE SODIUM [Concomitant]
  4. CLONAZEPAM [Concomitant]
  5. STELAZINE [Concomitant]
  6. CODEINE PHOSPHATE [Concomitant]
     Indication: HEADACHE
  7. DIAZEPAM [Concomitant]

REACTIONS (5)
  - DRUG INTERACTION [None]
  - EPILEPSY [None]
  - GASTROOESOPHAGEAL REFLUX DISEASE [None]
  - HYPERSENSITIVITY [None]
  - RASH PRURITIC [None]
